FAERS Safety Report 16795510 (Version 2)
Quarter: 2020Q1

REPORT INFORMATION
  Report Type: Spontaneous
  Country: RO (occurrence: RO)
  Receive Date: 20190911
  Receipt Date: 20200123
  Transmission Date: 20200409
  Serious: Yes (Death, Other)
  Sender: FDA-Public Use
  Company Number: PHHY2019RO210100

PATIENT
  Age: 17 Month
  Sex: Female
  Weight: 8 kg

DRUGS (17)
  1. ARNETIN [Concomitant]
     Active Substance: RANITIDINE HYDROCHLORIDE
     Indication: PRODUCT USED FOR UNKNOWN INDICATION
     Dosage: UNK
     Route: 065
     Dates: start: 20190727
  2. RANITIDINE. [Concomitant]
     Active Substance: RANITIDINE
     Indication: PRODUCT USED FOR UNKNOWN INDICATION
     Dosage: 2 MG/KG, QD (2-3 MG/KG, QD)
     Route: 065
     Dates: start: 20190901
  3. DEXAMETHASONE. [Concomitant]
     Active Substance: DEXAMETHASONE
     Indication: PRODUCT USED FOR UNKNOWN INDICATION
     Dosage: UNK UNK, UNK
     Route: 065
     Dates: start: 20190727
  4. SPIRONOLACTONE. [Concomitant]
     Active Substance: SPIRONOLACTONE
     Indication: PRODUCT USED FOR UNKNOWN INDICATION
     Dosage: UNK UNK, UNK
     Route: 065
     Dates: start: 20190727
  5. SOLU-MEDROL [Concomitant]
     Active Substance: METHYLPREDNISOLONE SODIUM SUCCINATE
     Indication: PRODUCT USED FOR UNKNOWN INDICATION
     Dosage: 1-2 MG/KG, QD
     Route: 065
     Dates: start: 20190901
  6. MYOZYME [Suspect]
     Active Substance: ALGLUCOSIDASE ALFA
     Dosage: 20 MG/KG
     Route: 041
     Dates: start: 20190807
  7. AERIUS [Concomitant]
     Indication: PRODUCT USED FOR UNKNOWN INDICATION
     Dosage: UNK UNK, UNK
     Route: 065
     Dates: start: 20190727
  8. MYOZYME [Suspect]
     Active Substance: ALGLUCOSIDASE ALFA
     Dosage: 3 DF, UNK
     Route: 065
     Dates: start: 20190727
  9. MYOZYME [Suspect]
     Active Substance: ALGLUCOSIDASE ALFA
     Dosage: UNK
     Route: 042
  10. BORTEZOMIB. [Concomitant]
     Active Substance: BORTEZOMIB
     Indication: PRODUCT USED FOR UNKNOWN INDICATION
     Dosage: 1.3 MG/M2
     Route: 065
     Dates: start: 20190517
  11. METHOTREXATE. [Suspect]
     Active Substance: METHOTREXATE
     Indication: PRODUCT USED FOR UNKNOWN INDICATION
     Dosage: 0.4 MG/KG
     Route: 065
     Dates: start: 20190530
  12. RITUXIMAB. [Suspect]
     Active Substance: RITUXIMAB
     Indication: PRODUCT USED FOR UNKNOWN INDICATION
     Dosage: 12.5 MG/KG
     Route: 065
     Dates: start: 20190515
  13. FUROSEMIDE. [Concomitant]
     Active Substance: FUROSEMIDE
     Indication: PRODUCT USED FOR UNKNOWN INDICATION
     Dosage: UNK UNK, UNK
     Route: 065
     Dates: start: 20190727
  14. DESLORATADINE. [Concomitant]
     Active Substance: DESLORATADINE
     Indication: PRODUCT USED FOR UNKNOWN INDICATION
     Dosage: 2.5 ML
     Route: 065
     Dates: start: 20190901
  15. MYOZYME [Suspect]
     Active Substance: ALGLUCOSIDASE ALFA
     Indication: GLYCOGEN STORAGE DISEASE TYPE II
     Dosage: 20 MG/KG, QOW
     Route: 042
     Dates: start: 20180901, end: 20190807
  16. CAPTOPRIL. [Concomitant]
     Active Substance: CAPTOPRIL
     Indication: PRODUCT USED FOR UNKNOWN INDICATION
     Dosage: UNK UNK, UNK
     Route: 065
     Dates: start: 20190727
  17. MYOZYME [Suspect]
     Active Substance: ALGLUCOSIDASE ALFA
     Indication: GLYCOGEN STORAGE DISEASE TYPE II
     Dosage: 25 MG/KG
     Route: 041
     Dates: start: 2019

REACTIONS (20)
  - Respiratory rate increased [Fatal]
  - Hypogammaglobulinaemia [Unknown]
  - Oxygen saturation decreased [Fatal]
  - Peripheral coldness [Fatal]
  - Hypotonia [Fatal]
  - Blood immunoglobulin A decreased [Unknown]
  - Metabolic acidosis [Fatal]
  - Cardiac murmur [Fatal]
  - Hyperthermia malignant [Fatal]
  - Cardio-respiratory arrest [Fatal]
  - Heart rate increased [Fatal]
  - Hypopnoea [Fatal]
  - Oedema peripheral [Unknown]
  - Cyanosis [Fatal]
  - Blood pressure increased [Fatal]
  - Antibody test positive [Recovered/Resolved]
  - Disease progression [Fatal]
  - Pyrexia [Fatal]
  - Chronic respiratory failure [Fatal]
  - Respiratory acidosis [Fatal]

NARRATIVE: CASE EVENT DATE: 2019
